FAERS Safety Report 4618967-5 (Version None)
Quarter: 2005Q1

REPORT INFORMATION
  Report Type: 
  Country: None (occurrence: None)
  Receive Date: 20050325
  Receipt Date: 20050315
  Transmission Date: 20050727
  Serious: Yes (Hospitalization)
  Sender: FDA-Public Use
  Company Number: 200510800JP

PATIENT
  Age: 46 Year
  Sex: Male

DRUGS (2)
  1. TAXOTERE [Suspect]
     Indication: NEOPLASM MALIGNANT
     Route: 041
  2. RADIATION THERAPY [Concomitant]
     Indication: NEOPLASM MALIGNANT
     Dosage: DOSE: UNK

REACTIONS (2)
  - LARYNGEAL OEDEMA [None]
  - LARYNGITIS [None]
